FAERS Safety Report 19466161 (Version 1)
Quarter: 2021Q2

REPORT INFORMATION
  Report Type: Spontaneous
  Country: JP (occurrence: JP)
  Receive Date: 20210624
  Receipt Date: 20210624
  Transmission Date: 20210717
  Serious: Yes (Other)
  Sender: FDA-Public Use
  Company Number: JP-BAXTER-2021BAX017330

PATIENT
  Age: 67 Year
  Sex: Female

DRUGS (4)
  1. ENDOXAN [Suspect]
     Active Substance: CYCLOPHOSPHAMIDE
     Dosage: DOSE RE?INTRODUCED
     Route: 048
     Dates: start: 202106
  2. ENDOXAN [Suspect]
     Active Substance: CYCLOPHOSPHAMIDE
     Indication: BREAST CANCER
     Route: 048
     Dates: start: 202105
  3. ENDOXAN [Suspect]
     Active Substance: CYCLOPHOSPHAMIDE
     Dosage: DOSE REINTRODUCED
     Route: 048
  4. FURTULON [Suspect]
     Active Substance: DOXIFLURIDINE
     Indication: PRODUCT USED FOR UNKNOWN INDICATION
     Route: 048

REACTIONS (1)
  - Melaena [Recovered/Resolved]

NARRATIVE: CASE EVENT DATE: 202105
